FAERS Safety Report 18920745 (Version 2)
Quarter: 2021Q1

REPORT INFORMATION
  Report Type: Spontaneous
  Country: US (occurrence: US)
  Receive Date: 20210222
  Receipt Date: 20210223
  Transmission Date: 20210420
  Serious: No
  Sender: FDA-Public Use
  Company Number: US-JNJFOC-20210234687

PATIENT
  Age: 51 Year
  Sex: Male
  Weight: 104.42 kg

DRUGS (1)
  1. IMODIUM MULTI?SYMPTOM RELIEF [Suspect]
     Active Substance: DIMETHICONE\LOPERAMIDE HYDROCHLORIDE
     Indication: DIARRHOEA
     Dosage: 4 TABLET AS NEEDED
     Route: 048
     Dates: start: 20210215, end: 20210215

REACTIONS (1)
  - Therapeutic product effect decreased [Unknown]
